FAERS Safety Report 11756007 (Version 1)
Quarter: 2015Q4

REPORT INFORMATION
  Report Type: Spontaneous
  Country: FI (occurrence: FI)
  Receive Date: 20151119
  Receipt Date: 20151119
  Transmission Date: 20160304
  Serious: Yes (Hospitalization)
  Sender: FDA-Public Use
  Company Number: FI-PFIZER INC-2015389924

PATIENT
  Age: 70 Year
  Sex: Male

DRUGS (1)
  1. RAMIPRIL. [Suspect]
     Active Substance: RAMIPRIL
     Indication: HYPERTENSION
     Dosage: 10 MG, DAILY
     Route: 065

REACTIONS (14)
  - C-reactive protein increased [Recovered/Resolved]
  - Chest pain [Recovered/Resolved]
  - Fibrin D dimer [Recovered/Resolved]
  - Drug interaction [Unknown]
  - Nausea [Recovered/Resolved]
  - Electrocardiogram T wave inversion [Recovered/Resolved]
  - Troponin I increased [Recovered/Resolved]
  - Somnolence [Unknown]
  - Blood lactic acid increased [Recovered/Resolved]
  - Leukocytosis [Recovered/Resolved]
  - Hypotension [Recovered/Resolved]
  - Pulse abnormal [Unknown]
  - Confusional state [Unknown]
  - Heart rate increased [Unknown]
